FAERS Safety Report 5288897-7 (Version None)
Quarter: 2007Q1

REPORT INFORMATION
  Report Type: 
  Country: None (occurrence: None)
  Receive Date: 20070117
  Receipt Date: 20061129
  Transmission Date: 20070707
  Serious: No
  Sender: FDA-Public Use
  Company Number: 2006US002858

PATIENT
  Sex: Female

DRUGS (2)
  1. VAPRISOL [Suspect]
     Indication: HYPONATRAEMIA
     Dosage: SEE IMAGE
     Route: 042
     Dates: start: 20061128, end: 20061128
  2. VAPRISOL [Suspect]
     Indication: HYPONATRAEMIA
     Dosage: SEE IMAGE
     Route: 042
     Dates: start: 20061128

REACTIONS (1)
  - ORTHOSTATIC HYPOTENSION [None]
